FAERS Safety Report 14741021 (Version 2)
Quarter: 2018Q2

REPORT INFORMATION
  Report Type: Spontaneous
  Country: US (occurrence: US)
  Receive Date: 20180410
  Receipt Date: 20180424
  Transmission Date: 20180711
  Serious: No
  Sender: FDA-Public Use
  Company Number: US-GLAXOSMITHKLINE-US2018058859

PATIENT
  Age: 70 Year
  Sex: Female

DRUGS (5)
  1. TRELEGY ELLIPTA [Suspect]
     Active Substance: FLUTICASONE FUROATE\UMECLIDINIUM BROMIDE\VILANTEROL TRIFENATATE
     Indication: EMPHYSEMA
     Dosage: 1 PUFF(S), QD
     Route: 055
     Dates: start: 20180403
  2. VENTOLIN HFA [Suspect]
     Active Substance: ALBUTEROL SULFATE
     Indication: EMPHYSEMA
     Dosage: UNK UNK, U
     Route: 055
  3. ADVAIR DISKUS [Suspect]
     Active Substance: FLUTICASONE PROPIONATE\SALMETEROL XINAFOATE
     Indication: EMPHYSEMA
     Dosage: UNK UNK, U
     Route: 055
     Dates: start: 2009, end: 20180402
  4. SPIRIVA [Suspect]
     Active Substance: TIOTROPIUM BROMIDE MONOHYDRATE
     Indication: PRODUCT USED FOR UNKNOWN INDICATION
     Dosage: UNK UNK, U
     Dates: start: 2009, end: 20180402
  5. HYDROCHLOROTHIAZIDE + VALSARTAN [Concomitant]

REACTIONS (4)
  - Malaise [Unknown]
  - Dyspepsia [Unknown]
  - Chest discomfort [Recovering/Resolving]
  - Drug effect delayed [Unknown]

NARRATIVE: CASE EVENT DATE: 20180403
